FAERS Safety Report 8533045 (Version 4)
Quarter: 2012Q4

REPORT INFORMATION
  Report Type: Spontaneous
  Country: US (occurrence: None)
  Receive Date: 20120418
  Receipt Date: 20120822
  Transmission Date: 20130627
  Serious: Yes (Hospitalization, Other)
  Sender: FDA-Public Use
  Company Number: DSA_56128_2012

PATIENT
  Age: 35 Year
  Sex: Male

DRUGS (47)
  1. ELIDEL [Suspect]
     Indication: ECZEMA
     Dosage: (DF TOPICAL)
     Route: 061
     Dates: start: 20050412, end: 200702
  2. SYNTHROID [Concomitant]
  3. DARVOCET-N 50 [Concomitant]
  4. LYRICA [Concomitant]
  5. ZANAFLEX [Concomitant]
  6. PREVACID [Concomitant]
  7. ENTEX PSE [Concomitant]
  8. PHENAZOPYRIDINE HYDROCHLORIDE [Concomitant]
  9. IBUPROFEN [Concomitant]
  10. RADIATION THERAPY [Concomitant]
  11. ADRIAMYCIN [Concomitant]
  12. BLEOMYCIN [Concomitant]
  13. VINBLASTINE SULFATE [Concomitant]
  14. DACARBAZINE [Concomitant]
  15. PIPERACILLIN AND TAZOBACTAM [Concomitant]
  16. MAGNESIUM HYDROXIDE [Concomitant]
  17. ZOLPIDEM [Concomitant]
  18. PROCHLORPERAZINE [Concomitant]
  19. LORAZEPAM [Concomitant]
  20. MORPHINE SULFATE [Concomitant]
  21. DIPHENHYDRAMINE HYDROCHLORIDE [Concomitant]
  22. PROMETHAZINE [Concomitant]
  23. NALOXONE HYDROCHLORIDE [Concomitant]
  24. HYDROMORPHONE HYDROCHLORIDE [Concomitant]
  25. ONDANSETRON [Concomitant]
  26. ATIVAN [Concomitant]
  27. PERCOCET [Concomitant]
  28. COMPAZINE /00013304/ [Concomitant]
  29. ALEVE [Concomitant]
  30. COLACE [Concomitant]
  31. NEULASTA [Concomitant]
  32. CIPROFLOXACIN [Concomitant]
  33. CILOXAN [Concomitant]
  34. OXYCODONE HYDROCHLORIDE [Concomitant]
  35. AMOXICILLIN [Concomitant]
  36. METRONIDAZOLE [Concomitant]
  37. LEVAQUIN [Concomitant]
  38. OXYCODONE/APAP /01601701/ [Concomitant]
  39. AMOXICILLIN AND CLAVULANATE POTASSIUM [Concomitant]
  40. DOCUSATE SODIUM [Concomitant]
  41. KETOCONAZOLE [Concomitant]
  42. DESONIDE [Concomitant]
  43. CELEBREX [Concomitant]
  44. LIDODERM [Concomitant]
  45. AUGMENTIN ^125^ [Concomitant]
  46. CHEMOTHERAPEUTICS NOS [Concomitant]
  47. ULTRAM [Concomitant]

REACTIONS (59)
  - INJURY [None]
  - HODGKIN^S DISEASE [None]
  - ABDOMINAL HERNIA [None]
  - KYPHOSIS [None]
  - SCOLIOSIS [None]
  - INTERVERTEBRAL DISC PROTRUSION [None]
  - INTERVERTEBRAL DISC DEGENERATION [None]
  - PAIN [None]
  - DERMATITIS CONTACT [None]
  - ABDOMINAL PAIN [None]
  - APPENDICITIS PERFORATED [None]
  - NEUROENDOCRINE CARCINOMA [None]
  - ARTHRALGIA [None]
  - DYSURIA [None]
  - EAR PAIN [None]
  - EXOSTOSIS [None]
  - ABDOMINAL ABSCESS [None]
  - HEPATIC LESION [None]
  - HEPATIC CYST [None]
  - SINUS DISORDER [None]
  - DYSPHAGIA [None]
  - WEIGHT DECREASED [None]
  - SOFT TISSUE MASS [None]
  - RADIATION OESOPHAGITIS [None]
  - MUCOSAL INFLAMMATION [None]
  - DIVERTICULUM INTESTINAL [None]
  - PROSTATOMEGALY [None]
  - DECREASED APPETITE [None]
  - NAUSEA [None]
  - VOMITING [None]
  - DIARRHOEA [None]
  - PYREXIA [None]
  - POSTOPERATIVE WOUND INFECTION [None]
  - POST PROCEDURAL CELLULITIS [None]
  - DYSPHONIA [None]
  - BACK PAIN [None]
  - NECK PAIN [None]
  - MUSCULOSKELETAL STIFFNESS [None]
  - ANGINA PECTORIS [None]
  - ACCIDENT AT WORK [None]
  - FALL [None]
  - LIGAMENT SPRAIN [None]
  - SINUS CONGESTION [None]
  - BRONCHITIS [None]
  - DRUG INEFFECTIVE [None]
  - OROPHARYNGEAL PAIN [None]
  - ACUTE SINUSITIS [None]
  - OTITIS EXTERNA [None]
  - UPPER-AIRWAY COUGH SYNDROME [None]
  - Meniscus injury [None]
  - CHONDROMALACIA [None]
  - CONJUNCTIVITIS [None]
  - JOINT EFFUSION [None]
  - SYNOVIAL CYST [None]
  - NEPHROLITHIASIS [None]
  - HYPOTHYROIDISM [None]
  - RADIATION INJURY [None]
  - THYROID MASS [None]
  - SEBORRHOEIC DERMATITIS [None]
